FAERS Safety Report 4674604-5 (Version None)
Quarter: 2005Q2

REPORT INFORMATION
  Report Type: 
  Country: None (occurrence: None)
  Receive Date: 20050526
  Receipt Date: 20050520
  Transmission Date: 20051028
  Serious: Yes (Other)
  Sender: FDA-Public Use
  Company Number: PHBS2005DE07312

PATIENT
  Age: 10 Month
  Sex: Male

DRUGS (5)
  1. PREDNISOLONE [Suspect]
     Indication: LIVER TRANSPLANT
     Dosage: 60 MG/M2/D
  2. PREDNISOLONE [Suspect]
     Dosage: 0.1 MG/KG/D
     Route: 065
  3. SANDIMMUNE [Suspect]
     Indication: LIVER TRANSPLANT
     Dosage: 5 MG/KG, BID
     Route: 065
  4. SIMULECT [Suspect]
     Indication: LIVER TRANSPLANT
     Dosage: 10 MG, ONCE/SINGLE
     Route: 065
  5. SIMULECT [Suspect]
     Dosage: 10 MG, ONCE/SINGLE
     Route: 065

REACTIONS (6)
  - BLOOD IMMUNOGLOBULIN G DECREASED [None]
  - BLOOD IMMUNOGLOBULIN M DECREASED [None]
  - C-REACTIVE PROTEIN INCREASED [None]
  - HYPOGAMMAGLOBULINAEMIA [None]
  - LIVER TRANSPLANT REJECTION [None]
  - PYREXIA [None]
